FAERS Safety Report 12873159 (Version 1)
Quarter: 2016Q4

REPORT INFORMATION
  Report Type: Spontaneous
  Country: DE (occurrence: DE)
  Receive Date: 20161021
  Receipt Date: 20161021
  Transmission Date: 20170207
  Serious: Yes (Death, Hospitalization)
  Sender: FDA-Public Use
  Company Number: DE-BAYER-2016-196251

PATIENT
  Age: 71 Year
  Sex: Male
  Weight: 108 kg

DRUGS (8)
  1. MACITENTAN [Suspect]
     Active Substance: MACITENTAN
     Dosage: 10 MG, UNK
  2. BISOPROLOL [Concomitant]
     Active Substance: BISOPROLOL
     Dosage: 5 MG, UNK
  3. PANTOZOL [Concomitant]
     Active Substance: PANTOPRAZOLE SODIUM
     Dosage: 40 MG, UNK
  4. TORASEMID [Suspect]
     Active Substance: TORSEMIDE
     Dosage: 10 MG, UNK
  5. ADEMPAS [Suspect]
     Active Substance: RIOCIGUAT
     Indication: PULMONARY HYPERTENSION
     Dosage: 1 MG, TID
     Route: 048
     Dates: start: 20160712, end: 20160912
  6. ADEMPAS [Suspect]
     Active Substance: RIOCIGUAT
     Indication: ACTIVATED PROTEIN C RESISTANCE
  7. XARELTO [Suspect]
     Active Substance: RIVAROXABAN
  8. QUETIAPINE. [Concomitant]
     Active Substance: QUETIAPINE
     Dosage: 25 MG, UNK

REACTIONS (5)
  - Pleural effusion [None]
  - Cardiac failure [None]
  - Acute kidney injury [Fatal]
  - Oliguria [Fatal]
  - Abdominal wall haemorrhage [None]

NARRATIVE: CASE EVENT DATE: 201607
